FAERS Safety Report 20797178 (Version 1)
Quarter: 2022Q2

REPORT INFORMATION
  Report Type: Spontaneous
  Country: JP (occurrence: BR)
  Receive Date: 20220506
  Receipt Date: 20220506
  Transmission Date: 20220721
  Serious: Yes (Other)
  Sender: FDA-Public Use
  Company Number: JP-DSPHARMA-2022SUN001445

PATIENT
  Age: 44 Year
  Sex: Female
  Weight: 85 kg

DRUGS (4)
  1. LATUDA [Suspect]
     Active Substance: LURASIDONE HYDROCHLORIDE
     Indication: Product used for unknown indication
     Dosage: 40 MG, QD
     Route: 065
     Dates: start: 201805, end: 202204
  2. LATUDA [Suspect]
     Active Substance: LURASIDONE HYDROCHLORIDE
     Indication: Emotional disorder
     Dosage: 80 MG, QD
     Route: 065
     Dates: start: 202204
  3. SERTRALINE [Concomitant]
     Active Substance: SERTRALINE HYDROCHLORIDE
     Dosage: 100 MG
     Route: 065
  4. RISPERIDONE [Concomitant]
     Active Substance: RISPERIDONE
     Dosage: 1 MG
     Route: 065

REACTIONS (4)
  - Breast cancer [Unknown]
  - Emotional disorder [Recovering/Resolving]
  - Off label use [Unknown]
  - Product use in unapproved indication [Unknown]
